FAERS Safety Report 20492372 (Version 1)
Quarter: 2022Q1

REPORT INFORMATION
  Report Type: Spontaneous
  Country: US (occurrence: US)
  Receive Date: 20220218
  Receipt Date: 20220218
  Transmission Date: 20220423
  Serious: No
  Sender: FDA-Public Use
  Company Number: US-HETERO-HET2022US00396

PATIENT

DRUGS (2)
  1. RITONAVIR [Suspect]
     Active Substance: RITONAVIR
     Indication: COVID-19
     Dosage: 400 MG, 2X/DAY (TWO 150MG NIRMATRELVIR TABLETS AND ONE 100MG RITONAVIR TABLET, TWICE A DAY)
     Route: 048
     Dates: start: 20220208
  2. TAGRISSO                           /08871701/ [Concomitant]
     Indication: Lung neoplasm malignant
     Dosage: UNK
     Route: 065

REACTIONS (4)
  - Product taste abnormal [Not Recovered/Not Resolved]
  - Incorrect dose administered [Unknown]
  - Dysgeusia [Not Recovered/Not Resolved]
  - Nausea [Not Recovered/Not Resolved]

NARRATIVE: CASE EVENT DATE: 20220208
